FAERS Safety Report 14282313 (Version 2)
Quarter: 2019Q1

REPORT INFORMATION
  Report Type: Spontaneous
  Country: US (occurrence: US)
  Receive Date: 20171213
  Receipt Date: 20190306
  Transmission Date: 20190417
  Serious: Yes (Hospitalization, Other)
  Sender: FDA-Public Use
  Company Number: US-PFIZER INC-2017527042

PATIENT
  Age: 79 Year
  Sex: Female
  Weight: 78.47 kg

DRUGS (1)
  1. LOMOTIL [Suspect]
     Active Substance: ATROPINE SULFATE\DIPHENOXYLATE HYDROCHLORIDE

REACTIONS (11)
  - Amnesia [Recovering/Resolving]
  - Dry throat [Unknown]
  - Malaise [Unknown]
  - Diarrhoea [Unknown]
  - Hallucination [Unknown]
  - Dehydration [Not Recovered/Not Resolved]
  - Choking sensation [Unknown]
  - Dysphagia [Unknown]
  - Mental impairment [Unknown]
  - Drug ineffective [Unknown]
  - Dry skin [Unknown]

NARRATIVE: CASE EVENT DATE: 2016
